FAERS Safety Report 7950758-X (Version None)
Quarter: 2011Q4

REPORT INFORMATION
  Report Type: 
  Country: None (occurrence: None)
  Receive Date: 20111123
  Receipt Date: 20111111
  Transmission Date: 20120403
  Serious: Yes (Death)
  Sender: FDA-Public Use
  Company Number: UTC-012302

PATIENT
  Age: 22 Year
  Sex: Female
  Weight: 59.1 kg

DRUGS (3)
  1. REVATIO [Concomitant]
  2. TRACLEER [Concomitant]
  3. TYVASO [Suspect]
     Indication: COR PULMONALE CHRONIC
     Dosage: INHALATION
     Route: 055
     Dates: start: 20110324

REACTIONS (1)
  - DEATH [None]
